FAERS Safety Report 4320505-1 (Version None)
Quarter: 2004Q1

REPORT INFORMATION
  Report Type: 
  Country: None (occurrence: None)
  Receive Date: 20040317
  Receipt Date: 20040305
  Transmission Date: 20041129
  Serious: Yes (Hospitalization)
  Sender: FDA-Public Use
  Company Number: 03P-151-0245389-00

PATIENT
  Age: 35 Year
  Sex: Female

DRUGS (6)
  1. HUMIRA [Suspect]
     Indication: RHEUMATOID ARTHRITIS
     Dosage: 40 MG, 1 IN 2 WK, SUBCUTANEOUS
     Route: 058
     Dates: start: 20030101, end: 20030101
  2. CORTICOSTEROIDS [Concomitant]
  3. ALENDRONATE SODIUM [Concomitant]
  4. CALCINADRONE D3 [Concomitant]
  5. PREDNISOLONE [Concomitant]
  6. MAGNESIUM PIDOLATE [Concomitant]

REACTIONS (3)
  - APATHY [None]
  - CHILLS [None]
  - LEGIONELLA INFECTION [None]
